FAERS Safety Report 23159684 (Version 1)
Quarter: 2023Q4

REPORT INFORMATION
  Report Type: Spontaneous
  Country: TR (occurrence: TR)
  Receive Date: 20231108
  Receipt Date: 20231108
  Transmission Date: 20240109
  Serious: Yes (Other)
  Sender: FDA-Public Use
  Company Number: TR-AMGEN-TURSP2023196006

PATIENT

DRUGS (4)
  1. ADALIMUMAB [Suspect]
     Active Substance: ADALIMUMAB\ISOPROPYL ALCOHOL
     Indication: Uveitis
     Dosage: 40 MILLIGRAM, Q2WK
     Route: 065
  2. ADALIMUMAB [Suspect]
     Active Substance: ADALIMUMAB\ISOPROPYL ALCOHOL
     Indication: Scleritis
     Dosage: 20 MILLIGRAM, Q2WK
     Route: 065
  3. ADALIMUMAB [Suspect]
     Active Substance: ADALIMUMAB\ISOPROPYL ALCOHOL
     Dosage: 40 MILLIGRAM, QWK
     Route: 065
  4. AZATHIOPRINE [Concomitant]
     Active Substance: AZATHIOPRINE

REACTIONS (10)
  - Behcet^s syndrome [Unknown]
  - Cystoid macular oedema [Unknown]
  - Uveitis [Unknown]
  - Scleritis [Unknown]
  - Pulmonary tuberculosis [Unknown]
  - Drug ineffective [Unknown]
  - Liver function test increased [Unknown]
  - Adverse event [Unknown]
  - Therapeutic product effect decreased [Unknown]
  - Injection site reaction [Unknown]
